FAERS Safety Report 6749926-4 (Version None)
Quarter: 2010Q2

REPORT INFORMATION
  Report Type: 
  Country: None (occurrence: None)
  Receive Date: 20100601
  Receipt Date: 20100525
  Transmission Date: 20101027
  Serious: Yes (Hospitalization, Other)
  Sender: FDA-Public Use
  Company Number: US-JNJFOC-20100510016

PATIENT
  Sex: Female
  Weight: 99.79 kg

DRUGS (11)
  1. FENTANYL CITRATE [Suspect]
     Indication: ARTHRALGIA
     Route: 062
  2. FENTANYL CITRATE [Suspect]
     Route: 062
  3. AMLODIPINE [Concomitant]
     Indication: HYPERTENSION
     Route: 048
  4. ASPIRIN [Concomitant]
     Indication: CARDIAC DISORDER
     Route: 048
  5. COLACE [Concomitant]
     Indication: CONSTIPATION
     Route: 048
  6. FOLIC ACID [Concomitant]
     Indication: MEDICAL DIET
     Route: 048
  7. FUROSEMIDE [Concomitant]
     Indication: FLUID RETENTION
     Route: 048
  8. PERCOCET [Concomitant]
     Indication: BREAKTHROUGH PAIN
     Route: 048
  9. SERTRALINE HCL [Concomitant]
     Indication: DEPRESSION
     Route: 048
  10. SIMVASTATIN [Concomitant]
     Indication: BLOOD CHOLESTEROL INCREASED
     Route: 048
  11. COUMADIN [Concomitant]
     Indication: ANTICOAGULANT THERAPY
     Route: 048

REACTIONS (7)
  - ABDOMINAL DISCOMFORT [None]
  - ANAEMIA [None]
  - CARDIOMYOPATHY [None]
  - DIABETES MELLITUS [None]
  - DRUG INEFFECTIVE [None]
  - RENAL FAILURE [None]
  - VOMITING [None]
